FAERS Safety Report 5619034-4 (Version None)
Quarter: 2008Q1

REPORT INFORMATION
  Report Type: 
  Country: None (occurrence: None)
  Receive Date: 20080207
  Receipt Date: 20080125
  Transmission Date: 20080703
  Serious: Yes (Other)
  Sender: FDA-Public Use
  Company Number: US-BOEHRINGER INGELHEIM GMBH, GERMANY-2008-DE-00480GD

PATIENT
  Sex: Male

DRUGS (6)
  1. OXYMETAZOLINE HYDROCHLORIDE [Suspect]
     Indication: NASAL CONGESTION
     Route: 061
  2. RANITIDINE [Suspect]
     Indication: GASTROOESOPHAGEAL REFLUX DISEASE
  3. MOMETASONE FUROATE [Suspect]
     Indication: NASAL CONGESTION
  4. METOCLOPRAMIDE [Suspect]
     Indication: GASTROOESOPHAGEAL REFLUX DISEASE
  5. STEROIDS [Suspect]
     Indication: NASAL CONGESTION
     Route: 051
  6. STEROIDS [Suspect]
     Route: 061

REACTIONS (1)
  - DRUG INEFFECTIVE [None]
